FAERS Safety Report 15789820 (Version 2)
Quarter: 2019Q1

REPORT INFORMATION
  Report Type: Spontaneous
  Country: TR (occurrence: TR)
  Receive Date: 20190104
  Receipt Date: 20190108
  Transmission Date: 20190417
  Serious: Yes (Death, Other)
  Sender: FDA-Public Use
  Company Number: TR-PFIZER INC-2018536521

PATIENT
  Age: 68 Year
  Sex: Male

DRUGS (2)
  1. VANCOMYCIN HCL [Suspect]
     Active Substance: VANCOMYCIN HYDROCHLORIDE
     Indication: MENINGITIS PNEUMOCOCCAL
     Dosage: 1 G, 1X/DAY
  2. CEFTRIAXONE. [Suspect]
     Active Substance: CEFTRIAXONE
     Indication: MENINGITIS PNEUMOCOCCAL
     Dosage: 2 G, 2X/DAY

REACTIONS (6)
  - Cardiac arrest [Fatal]
  - Seizure [Unknown]
  - Drug resistance [Unknown]
  - Cardiac arrest [Recovered/Resolved]
  - Pyrexia [Unknown]
  - Brain abscess [Unknown]
